FAERS Safety Report 11930169 (Version 1)
Quarter: 2016Q1

REPORT INFORMATION
  Report Type: Spontaneous
  Country: US (occurrence: None)
  Receive Date: 20160119
  Receipt Date: 20160119
  Transmission Date: 20160526
  Serious: Yes (Death)
  Sender: FDA-Public Use
  Company Number: None

PATIENT
  Age: 55 Year
  Sex: Female
  Weight: 82.1 kg

DRUGS (5)
  1. JARDIANCE [Suspect]
     Active Substance: EMPAGLIFLOZIN
     Indication: DIABETES MELLITUS INADEQUATE CONTROL
     Route: 048
     Dates: start: 20150504, end: 20151230
  2. GABAPENTIN. [Concomitant]
     Active Substance: GABAPENTIN
  3. LORAZEPAM. [Concomitant]
     Active Substance: LORAZEPAM
  4. TRAMADOL/ACETAMINOPHEN [Concomitant]
     Active Substance: ACETAMINOPHEN\TRAMADOL
  5. ATENOLOL. [Concomitant]
     Active Substance: ATENOLOL

REACTIONS (3)
  - Pancreatitis acute [None]
  - Distributive shock [None]
  - Acute respiratory distress syndrome [None]

NARRATIVE: CASE EVENT DATE: 20160101
